FAERS Safety Report 7951124-3 (Version None)
Quarter: 2011Q4

REPORT INFORMATION
  Report Type: 
  Country: None (occurrence: None)
  Receive Date: 20111125
  Receipt Date: 20111121
  Transmission Date: 20120403
  Serious: Yes (Death, Hospitalization)
  Sender: FDA-Public Use
  Company Number: DSA_47459_2011

PATIENT
  Sex: Female

DRUGS (2)
  1. XENAZINE [Suspect]
     Indication: DYSKINESIA
     Dosage: (12.5 MG BID ORAL)
     Route: 048
     Dates: start: 20100428, end: 20111027
  2. XENAZINE [Suspect]
     Indication: TREMOR
     Dosage: (12.5 MG BID ORAL)
     Route: 048
     Dates: start: 20100428, end: 20111027

REACTIONS (1)
  - DEATH [None]
